FAERS Safety Report 14113895 (Version 2)
Quarter: 2017Q4

REPORT INFORMATION
  Report Type: Report from Study
  Country: IT (occurrence: IT)
  Receive Date: 20171023
  Receipt Date: 20171103
  Transmission Date: 20180321
  Serious: Yes (Other)
  Sender: FDA-Public Use
  Company Number: IT-ACCORD-060056

PATIENT
  Age: 83 Year
  Sex: Male

DRUGS (8)
  1. TACHIDOL [Concomitant]
     Active Substance: ACETAMINOPHEN\CODEINE PHOSPHATE
  2. ALLOPURINOL. [Concomitant]
     Active Substance: ALLOPURINOL
  3. RAMIPRIL. [Suspect]
     Active Substance: RAMIPRIL
     Indication: HYPERTENSION
     Route: 048
     Dates: start: 20160101, end: 20161101
  4. COUMADIN [Concomitant]
     Active Substance: WARFARIN SODIUM
  5. RANITIDINE. [Concomitant]
     Active Substance: RANITIDINE
  6. TERAZOSIN [Interacting]
     Active Substance: TERAZOSIN\TERAZOSIN HYDROCHLORIDE
     Indication: BENIGN PROSTATIC HYPERPLASIA
     Route: 048
     Dates: start: 20160101, end: 20161101
  7. BISOPROLOL [Interacting]
     Active Substance: BISOPROLOL
     Indication: HYPERTENSION
     Route: 048
     Dates: start: 20160101, end: 20161101
  8. LANOXIN [Concomitant]
     Active Substance: DIGOXIN
     Dosage: STRENGTH: 0.125 MG

REACTIONS (6)
  - Presyncope [Recovering/Resolving]
  - Vision blurred [Recovering/Resolving]
  - Visual impairment [Recovering/Resolving]
  - Orthostatic hypotension [Recovering/Resolving]
  - Fatigue [Recovering/Resolving]
  - Drug interaction [Unknown]

NARRATIVE: CASE EVENT DATE: 20161101
